FAERS Safety Report 5927996-0 (Version None)
Quarter: 2008Q4

REPORT INFORMATION
  Report Type: 
  Country: None (occurrence: None)
  Receive Date: 20081023
  Receipt Date: 20081021
  Transmission Date: 20090506
  Serious: Yes (Other)
  Sender: FDA-Public Use
  Company Number: GB-BAYER-200812287BNE

PATIENT
  Age: 58 Year
  Sex: Male
  Weight: 126 kg

DRUGS (2)
  1. ULTRAVIST 370 [Suspect]
     Indication: ANGIOGRAM
     Route: 013
  2. ULTRAVIST 370 [Suspect]

REACTIONS (2)
  - BLISTER [None]
  - RASH [None]
